FAERS Safety Report 20461714 (Version 1)
Quarter: 2022Q1

REPORT INFORMATION
  Report Type: Spontaneous
  Country: JP (occurrence: JP)
  Receive Date: 20220211
  Receipt Date: 20220211
  Transmission Date: 20220423
  Serious: Yes (Other)
  Sender: FDA-Public Use
  Company Number: JP-SUNOVION-2022DSP001776

PATIENT
  Age: 4 Decade
  Sex: Male

DRUGS (2)
  1. LATUDA [Suspect]
     Active Substance: LURASIDONE HYDROCHLORIDE
     Indication: Hallucination, auditory
     Dosage: 60 MG, QD
     Route: 048
  2. LATUDA [Suspect]
     Active Substance: LURASIDONE HYDROCHLORIDE
     Dosage: UNK
     Route: 048

REACTIONS (5)
  - Hallucination [Unknown]
  - Mania [Recovered/Resolved]
  - Delusion [Unknown]
  - Impulsive behaviour [Unknown]
  - Irritability [Unknown]
